FAERS Safety Report 7102623-8 (Version None)
Quarter: 2010Q4

REPORT INFORMATION
  Report Type: 
  Country: None (occurrence: None)
  Receive Date: 20101115
  Receipt Date: 20101102
  Transmission Date: 20110411
  Serious: Yes (Death, Life-Threatening)
  Sender: FDA-Public Use
  Company Number: B0683408A

PATIENT
  Sex: Female
  Weight: 36.3 kg

DRUGS (71)
  1. ALKERAN [Suspect]
     Indication: ALLOGENIC BONE MARROW TRANSPLANTATION THERAPY
     Dosage: 70MG PER DAY
     Route: 042
     Dates: start: 20071104, end: 20071105
  2. LYMPHOGLOBULINE [Suspect]
     Indication: ALLOGENIC BONE MARROW TRANSPLANTATION THERAPY
     Dosage: 10MGM2 PER DAY
     Route: 042
     Dates: start: 20071104, end: 20071105
  3. FLUDARA [Suspect]
     Indication: ALLOGENIC BONE MARROW TRANSPLANTATION THERAPY
     Dosage: 30MGM2 PER DAY
     Route: 042
     Dates: start: 20071102, end: 20071105
  4. VANCOMYCIN [Suspect]
     Route: 042
     Dates: start: 20071114, end: 20071115
  5. VANCOMYCIN [Suspect]
     Route: 042
     Dates: start: 20071116, end: 20071116
  6. NEU-UP [Concomitant]
     Dosage: 250MCG PER DAY
     Route: 042
     Dates: start: 20071116, end: 20071212
  7. TACROLIMUS [Concomitant]
     Indication: IMMUNOSUPPRESSION
     Dosage: .4MG PER DAY
     Route: 065
     Dates: start: 20071105
  8. METHOTREXATE [Concomitant]
     Indication: IMMUNOSUPPRESSION
     Dosage: 6MG TWICE PER DAY
     Route: 065
     Dates: start: 20071106, end: 20071110
  9. VALTREX [Concomitant]
     Dosage: 1000MG PER DAY
     Route: 048
     Dates: start: 20071102, end: 20071108
  10. URSO 250 [Concomitant]
     Dosage: 300MG PER DAY
     Route: 048
     Dates: start: 20071102, end: 20071129
  11. DIFLUCAN [Concomitant]
     Dosage: 200MG PER DAY
     Route: 048
     Dates: start: 20071102, end: 20071108
  12. PREDNISOLONE [Concomitant]
     Route: 048
     Dates: start: 20071102, end: 20071103
  13. CHINESE MEDICINE [Concomitant]
     Dosage: 7.5G PER DAY
     Route: 048
     Dates: start: 20071102, end: 20071107
  14. BAKTAR [Concomitant]
     Dosage: 2IUAX PER DAY
     Route: 048
     Dates: start: 20071102, end: 20071125
  15. HYALEIN [Concomitant]
     Dosage: 10ML PER DAY
     Route: 031
     Dates: start: 20071102, end: 20071102
  16. AZUNOL [Concomitant]
     Dosage: 20G PER DAY
     Route: 003
     Dates: start: 20071105, end: 20071127
  17. RESTAMIN [Concomitant]
     Dosage: 30G PER DAY
     Route: 003
     Dates: start: 20071105, end: 20071105
  18. GENTACIN [Concomitant]
     Dosage: 10G PER DAY
     Route: 003
     Dates: start: 20071105, end: 20071105
  19. OFLOXACIN [Concomitant]
     Route: 031
     Dates: start: 20071105, end: 20071106
  20. CALONAL [Concomitant]
     Dosage: 200MG PER DAY
     Route: 048
     Dates: start: 20071105, end: 20071124
  21. FLUMETHOLON [Concomitant]
     Route: 031
     Dates: start: 20071106, end: 20071106
  22. HACHIAZULE [Concomitant]
     Dates: start: 20071107, end: 20071107
  23. XYLOCAINE [Concomitant]
     Dosage: 10ML PER DAY
     Dates: start: 20071107, end: 20071107
  24. DISTILLED WATER [Concomitant]
     Route: 065
     Dates: start: 20071107, end: 20071107
  25. NICOTINE POLACRILEX [Concomitant]
     Dosage: 3IUAX PER DAY
     Dates: start: 20071109, end: 20071115
  26. TRIAMCINOLONE [Concomitant]
     Route: 003
     Dates: start: 20071117, end: 20071126
  27. ASTOMIN [Concomitant]
     Dosage: 30MG PER DAY
     Route: 048
     Dates: start: 20071120, end: 20071202
  28. ECOLICIN [Concomitant]
     Route: 047
     Dates: start: 20071126, end: 20071126
  29. SOLITA-T3 [Concomitant]
     Route: 048
     Dates: start: 20071128
  30. ENTERONON-R [Concomitant]
     Dosage: 3G PER DAY
     Route: 048
     Dates: start: 20071130, end: 20071213
  31. MARZULENE-S [Concomitant]
     Dosage: 2.1G PER DAY
     Dates: start: 20071130, end: 20071213
  32. FLAGYL [Concomitant]
     Dosage: 1IUAX PER DAY
     Route: 048
     Dates: start: 20071201, end: 20071213
  33. SEISHOKU [Concomitant]
     Dosage: 100ML PER DAY
     Route: 042
     Dates: start: 20071102, end: 20071126
  34. KYTRIL [Concomitant]
     Dosage: 3MG PER DAY
     Route: 042
     Dates: start: 20071102, end: 20071110
  35. SOLITA-T [Concomitant]
     Dosage: 3000ML PER DAY
     Route: 042
     Dates: start: 20071103, end: 20071126
  36. MEYLON [Concomitant]
     Dosage: 120ML PER DAY
     Route: 042
     Dates: start: 20071103, end: 20071105
  37. HEPARIN [Concomitant]
     Dosage: 3ML PER DAY
     Route: 042
     Dates: start: 20071103, end: 20071107
  38. PENTCILLIN [Concomitant]
     Dosage: 3G PER DAY
     Route: 042
     Dates: start: 20071104, end: 20071111
  39. AMIKACIN SULFATE [Concomitant]
     Dosage: 160MG PER DAY
     Route: 042
     Dates: start: 20071104, end: 20071115
  40. SOLU-CORTEF [Concomitant]
     Dosage: 100MG PER DAY
     Route: 042
     Dates: start: 20071104, end: 20071107
  41. PRODIF [Concomitant]
     Dosage: 200MG PER DAY
     Route: 042
     Dates: start: 20071104, end: 20071111
  42. ZOVIRAX [Concomitant]
     Dosage: 600MG PER DAY
     Route: 042
     Dates: start: 20071104, end: 20071126
  43. SOLU-MEDROL [Concomitant]
     Dosage: 72MG PER DAY
     Route: 042
     Dates: start: 20071105, end: 20071115
  44. PROTEAMIN [Concomitant]
     Dosage: 100ML PER DAY
     Dates: start: 20071105, end: 20071126
  45. WATER [Concomitant]
     Dosage: 500ML PER DAY
     Dates: start: 20071105
  46. UNKNOWN [Concomitant]
     Dosage: 1000ML PER DAY
     Dates: start: 20071105, end: 20071126
  47. POTASSIUM CHLORIDE [Concomitant]
     Dosage: 10ML PER DAY
     Dates: start: 20071105, end: 20071107
  48. ELEMENMIC [Concomitant]
     Dosage: 2ML PER DAY
     Dates: start: 20071105, end: 20071126
  49. MULTI-VITAMINS [Concomitant]
     Dosage: 1IUAX PER DAY
     Dates: start: 20071105, end: 20071126
  50. PROGRAF [Concomitant]
     Dosage: .4MG PER DAY
     Route: 042
     Dates: start: 20071105, end: 20071126
  51. GAMMAGARD [Concomitant]
     Dosage: 100ML SEVEN TIMES PER DAY
     Route: 042
     Dates: start: 20071106, end: 20071120
  52. SODIUM CHLORIDE [Concomitant]
     Dosage: 80ML PER DAY
     Route: 042
     Dates: start: 20071106, end: 20071112
  53. ATARAX [Concomitant]
     Dosage: 25MG PER DAY
     Route: 042
     Dates: start: 20071107, end: 20071107
  54. HAPTOGLOBIN [Concomitant]
     Dosage: 1IUAX PER DAY
     Route: 042
     Dates: start: 20071107, end: 20071107
  55. FRAGMIN [Concomitant]
     Dosage: 3ML PER DAY
     Dates: start: 20071108, end: 20071126
  56. MAGNESIUM SULFATE [Concomitant]
     Dosage: 14ML PER DAY
     Dates: start: 20071108, end: 20071126
  57. UROKINASE [Concomitant]
     Dosage: 1IUAX PER DAY
     Route: 042
     Dates: start: 20071108, end: 20071108
  58. CARBENIN [Concomitant]
     Dosage: 1.5G PER DAY
     Route: 042
     Dates: start: 20071111, end: 20071116
  59. FUNGUARD [Concomitant]
     Dosage: 100MG PER DAY
     Route: 042
     Dates: start: 20071111, end: 20071126
  60. MEROPEN [Concomitant]
     Dosage: 500MG PER DAY
     Route: 042
     Dates: start: 20071116, end: 20071126
  61. TAGAMET [Concomitant]
     Route: 042
     Dates: start: 20071122, end: 20071125
  62. HABEKACIN [Concomitant]
     Dosage: 75MG PER DAY
     Route: 042
     Dates: start: 20071116, end: 20071125
  63. NEUART [Concomitant]
     Route: 042
     Dates: start: 20071120, end: 20071122
  64. DOPAMINE HCL [Concomitant]
     Dosage: 40MG PER DAY
     Route: 042
     Dates: start: 20071122, end: 20071125
  65. ALBUMIN (HUMAN) [Concomitant]
     Dosage: 20ML PER DAY
     Route: 042
     Dates: start: 20071122, end: 20071123
  66. FUROSEMIDE [Concomitant]
     Dosage: 10MG PER DAY
     Route: 042
     Dates: start: 20071123, end: 20071123
  67. TARGOCID [Concomitant]
     Dosage: 600MG PER DAY
     Route: 042
     Dates: start: 20071125, end: 20071126
  68. CORTROSYN [Concomitant]
     Dosage: .25MG PER DAY
     Route: 042
     Dates: start: 20071126, end: 20071126
  69. LASTET [Concomitant]
     Dosage: 35MG PER DAY
     Route: 042
     Dates: start: 20071201, end: 20071201
  70. GLUCOSE [Concomitant]
     Dosage: 100ML PER DAY
     Route: 042
     Dates: start: 20071201, end: 20071201
  71. NOVOSEVEN [Concomitant]
     Route: 042

REACTIONS (7)
  - ACUTE RESPIRATORY DISTRESS SYNDROME [None]
  - FEBRILE NEUTROPENIA [None]
  - HAEMORRHAGE INTRACRANIAL [None]
  - PNEUMONIA [None]
  - RENAL FAILURE ACUTE [None]
  - SEPSIS [None]
  - SHOCK [None]
